FAERS Safety Report 7546632-3 (Version None)
Quarter: 2011Q2

REPORT INFORMATION
  Report Type: 
  Country: None (occurrence: None)
  Receive Date: 20110614
  Receipt Date: 20110606
  Transmission Date: 20111010
  Serious: Yes (Hospitalization, Other)
  Sender: FDA-Public Use
  Company Number: CZ-TEVA-285418ISR

PATIENT
  Sex: Male

DRUGS (7)
  1. TUSSIN [Concomitant]
  2. SINECOD [Concomitant]
  3. CLARITHROMYCIN [Suspect]
     Indication: COUGH
     Dosage: 1000 MILLIGRAM; PO 12 HOD
     Route: 048
     Dates: start: 20110522, end: 20110523
  4. IBUPROFEN [Concomitant]
  5. SPIROPENT [Concomitant]
  6. ZODAC [Concomitant]
  7. PROTHAZIN [Concomitant]

REACTIONS (3)
  - EYELID OEDEMA [None]
  - ERYTHEMA [None]
  - MOUTH ULCERATION [None]
